FAERS Safety Report 4352262-7 (Version None)
Quarter: 2004Q2

REPORT INFORMATION
  Report Type: 
  Country: None (occurrence: None)
  Receive Date: 20040416
  Receipt Date: 20010924
  Transmission Date: 20050107
  Serious: Yes (Disabling)
  Sender: FDA-Public Use
  Company Number: 200001458BWH

PATIENT
  Age: 12 Year
  Sex: Female
  Weight: 54.4316 kg

DRUGS (5)
  1. CIPRO [Suspect]
     Indication: OSTEOMYELITIS
     Dosage: 750 MG, BID, ORAL; 500 MG, BID, ORAL
     Route: 048
     Dates: start: 20000404, end: 20000504
  2. CIPRO [Suspect]
     Indication: OSTEOMYELITIS
     Dosage: 750 MG, BID, ORAL; 500 MG, BID, ORAL
     Route: 048
     Dates: start: 20000504, end: 20000511
  3. CEFIXIME [Concomitant]
  4. ZOSYN [Concomitant]
  5. PROVENTIL NEBULIZER [Concomitant]

REACTIONS (6)
  - ARTHRALGIA [None]
  - BACK PAIN [None]
  - JOINT CONTRACTURE [None]
  - PAIN IN EXTREMITY [None]
  - TENDON DISORDER [None]
  - TENDONITIS [None]
